FAERS Safety Report 8790235 (Version 4)
Quarter: 2013Q1

REPORT INFORMATION
  Report Type: Spontaneous
  Country: US (occurrence: US)
  Receive Date: 20120917
  Receipt Date: 20130115
  Transmission Date: 20140127
  Serious: Yes (Disabling)
  Sender: FDA-Public Use
  Company Number: US-009507513-1209USA003363

PATIENT
  Sex: Male

DRUGS (10)
  1. SINEMET [Suspect]
     Indication: PARKINSON^S DISEASE
     Dosage: 25/100 MG, 4 DF, QID
     Route: 048
     Dates: start: 2006, end: 201203
  2. SINEMET [Suspect]
     Dosage: 25/100 MG
     Route: 048
     Dates: start: 201203
  3. MIRAPEX [Suspect]
     Dosage: UNK
     Dates: end: 2011
  4. COMTAN [Concomitant]
     Dosage: UNK
  5. ANTARA [Concomitant]
     Dosage: UNK
  6. ASPIRIN [Concomitant]
     Dosage: UNK
  7. PAXIL [Concomitant]
     Dosage: UNK
  8. CLONAZEPAM [Concomitant]
  9. CRESTOR [Concomitant]
  10. KLONOPIN [Concomitant]

REACTIONS (2)
  - Pathological gambling [Recovered/Resolved]
  - Overdose [Unknown]
